FAERS Safety Report 7802618-2 (Version None)
Quarter: 2011Q4

REPORT INFORMATION
  Report Type: 
  Country: None (occurrence: None)
  Receive Date: 20111005
  Receipt Date: 20110923
  Transmission Date: 20120403
  Serious: Yes (Other)
  Sender: FDA-Public Use
  Company Number: 2011SP029740

PATIENT
  Age: 66 Year
  Sex: Female

DRUGS (5)
  1. HYDRA-ZIDE [Concomitant]
  2. ROCALTROL [Concomitant]
  3. POTASSIUM CHLORIDE [Suspect]
     Indication: PRODUCT USED FOR UNKNOWN INDICATION
     Dosage: 20 MG;QD;PO
     Route: 048
  4. ALTACE [Concomitant]
  5. LIPITOR [Concomitant]

REACTIONS (1)
  - PHARYNGEAL OEDEMA [None]
